FAERS Safety Report 5499800-9 (Version None)
Quarter: 2007Q4

REPORT INFORMATION
  Report Type: 
  Country: None (occurrence: None)
  Receive Date: 20071026
  Receipt Date: 20071015
  Transmission Date: 20080405
  Serious: Yes (Other)
  Sender: FDA-Public Use
  Company Number: AU-PFIZER INC-2007086199

PATIENT
  Age: 69 Year
  Sex: Female

DRUGS (3)
  1. LIPITOR [Suspect]
     Route: 048
  2. CARDIOVASCULAR SYSTEM DRUGS [Interacting]
     Indication: BLOOD PRESSURE
  3. CONTRAST MEDIA [Interacting]
     Indication: COMPUTERISED TOMOGRAM
     Route: 042

REACTIONS (10)
  - DRUG ADMINISTRATION ERROR [None]
  - DRUG INTERACTION [None]
  - ERYTHEMA [None]
  - HYPOAESTHESIA [None]
  - INJECTION SITE EXTRAVASATION [None]
  - OEDEMA PERIPHERAL [None]
  - PAIN IN EXTREMITY [None]
  - SKIN DISORDER [None]
  - SKIN EXFOLIATION [None]
  - SKIN WRINKLING [None]
